FAERS Safety Report 4309980-6 (Version None)
Quarter: 2004Q1

REPORT INFORMATION
  Report Type: 
  Country: None (occurrence: None)
  Receive Date: 20040303
  Receipt Date: 20040116
  Transmission Date: 20041129
  Serious: Yes (Other)
  Sender: FDA-Public Use
  Company Number: 200410099JP

PATIENT
  Age: 72 Year
  Sex: Female
  Weight: 45 kg

DRUGS (5)
  1. ARAVA [Suspect]
     Indication: RHEUMATOID ARTHRITIS
     Route: 048
     Dates: start: 20031129, end: 20040105
  2. SELTOUCH [Concomitant]
     Route: 003
     Dates: start: 20030620, end: 20031128
  3. MILTAX [Concomitant]
     Dates: start: 20031128
  4. SALICYLIC ACID [Concomitant]
     Indication: HYPERKERATOSIS
     Route: 003
     Dates: start: 20031212, end: 20040130
  5. EXCELASE [Concomitant]
     Indication: ANOREXIA

REACTIONS (7)
  - ALANINE AMINOTRANSFERASE INCREASED [None]
  - ANOREXIA [None]
  - ASPARTATE AMINOTRANSFERASE INCREASED [None]
  - BLOOD ALKALINE PHOSPHATASE INCREASED [None]
  - BLOOD LACTATE DEHYDROGENASE INCREASED [None]
  - DRUG INEFFECTIVE [None]
  - GAMMA-GLUTAMYLTRANSFERASE INCREASED [None]
